FAERS Safety Report 4325294-2 (Version None)
Quarter: 2004Q1

REPORT INFORMATION
  Report Type: 
  Country: None (occurrence: None)
  Receive Date: 20040326
  Receipt Date: 20040326
  Transmission Date: 20041129
  Serious: Yes (Hospitalization)
  Sender: FDA-Public Use
  Company Number: None

PATIENT
  Sex: Female
  Weight: 51.7 kg

DRUGS (11)
  1. CARMUSTINE [Suspect]
     Indication: GLIOBLASTOMA MULTIFORME
     Dosage: 46 MG X 3 EVERY 8 WE  IV
     Route: 042
     Dates: start: 20030723, end: 20040219
  2. MORPHINE SULFATE [Concomitant]
  3. DURAGESIC [Concomitant]
  4. XANAX [Concomitant]
  5. GEODON [Concomitant]
  6. PREVACID [Concomitant]
  7. ENDOCET [Concomitant]
  8. KLOR-CON [Concomitant]
  9. ANTIVERT [Concomitant]
  10. DEXAMETHASONE [Concomitant]
  11. SENOKOT [Concomitant]

REACTIONS (8)
  - BLINDNESS [None]
  - BLOOD POTASSIUM DECREASED [None]
  - BLOOD PRESSURE DECREASED [None]
  - BODY TEMPERATURE INCREASED [None]
  - CONFUSIONAL STATE [None]
  - GASTROENTERITIS [None]
  - MEMORY IMPAIRMENT [None]
  - NECROSIS [None]
